FAERS Safety Report 16691364 (Version 1)
Quarter: 2019Q3

REPORT INFORMATION
  Report Type: Spontaneous
  Country: US (occurrence: US)
  Receive Date: 20190812
  Receipt Date: 20190812
  Transmission Date: 20191004
  Serious: No
  Sender: FDA-Public Use
  Company Number: US-AUROBINDO-AUR-APL-2019-023574

PATIENT

DRUGS (6)
  1. LOSARTAN POTASSIUM AND HCTZ [Concomitant]
     Active Substance: HYDROCHLOROTHIAZIDE\LOSARTAN POTASSIUM
     Indication: PRODUCT USED FOR UNKNOWN INDICATION
  2. ASPIRIN. [Concomitant]
     Active Substance: ASPIRIN
     Indication: PRODUCT USED FOR UNKNOWN INDICATION
  3. ZOLOFT [Concomitant]
     Active Substance: SERTRALINE HYDROCHLORIDE
     Indication: PRODUCT USED FOR UNKNOWN INDICATION
  4. VITAMIN D [Concomitant]
     Active Substance: VITAMIN D NOS
     Indication: PRODUCT USED FOR UNKNOWN INDICATION
  5. RISEDRONATE SODIUM TABLET USP 150 MG [Suspect]
     Active Substance: RISEDRONATE SODIUM
     Indication: HAEMORRHAGE
     Dosage: 01 TABLET A ONE MONTH
     Dates: start: 20190410, end: 20190410
  6. PLAVIX [Concomitant]
     Active Substance: CLOPIDOGREL BISULFATE
     Indication: PRODUCT USED FOR UNKNOWN INDICATION

REACTIONS (5)
  - Pain [Recovered/Resolved]
  - Muscular weakness [Recovered/Resolved]
  - Adverse event [Recovered/Resolved]
  - Movement disorder [Recovered/Resolved]
  - Micturition disorder [Recovered/Resolved]

NARRATIVE: CASE EVENT DATE: 20190410
